FAERS Safety Report 25679489 (Version 1)
Quarter: 2025Q3

REPORT INFORMATION
  Report Type: Spontaneous
  Country: CA (occurrence: CA)
  Receive Date: 20250814
  Receipt Date: 20250814
  Transmission Date: 20251020
  Serious: Yes (Other)
  Sender: JOHNSON AND JOHNSON
  Company Number: CA-JNJFOC-20250810946

PATIENT
  Age: 22 Year
  Sex: Female

DRUGS (1)
  1. USTEKINUMAB [Suspect]
     Active Substance: USTEKINUMAB
     Indication: Psoriasis
     Route: 058

REACTIONS (4)
  - Localised infection [Unknown]
  - Oral herpes [Unknown]
  - Psoriasis [Unknown]
  - Intentional product use issue [Unknown]
